FAERS Safety Report 6011854-X (Version None)
Quarter: 2008Q4

REPORT INFORMATION
  Report Type: 
  Country: None (occurrence: None)
  Receive Date: 20081218
  Receipt Date: 20081216
  Transmission Date: 20090506
  Serious: Yes (Death)
  Sender: FDA-Public Use
  Company Number: DE-SANOFI-SYNTHELABO-F04200800124

PATIENT
  Sex: Male

DRUGS (12)
  1. POTASSIUM CHLORIDE [Concomitant]
     Indication: DIARRHOEA
     Dosage: UNK
     Route: 048
     Dates: start: 20070206
  2. LOPERAMIDE HCL [Concomitant]
     Indication: DIARRHOEA
     Dosage: UNK
     Route: 048
  3. BEVACIZUMAB [Suspect]
     Indication: COLORECTAL CANCER METASTATIC
     Route: 041
     Dates: start: 20070122, end: 20070122
  4. BEVACIZUMAB [Suspect]
     Indication: DISEASE PROGRESSION
     Route: 041
     Dates: start: 20070122, end: 20070122
  5. CALCIUM FOLINATE [Suspect]
     Indication: DISEASE PROGRESSION
     Route: 041
     Dates: start: 20070122, end: 20070123
  6. CALCIUM FOLINATE [Suspect]
     Indication: COLORECTAL CANCER METASTATIC
     Route: 041
     Dates: start: 20070122, end: 20070123
  7. FLUOROURACIL [Suspect]
     Indication: COLORECTAL CANCER METASTATIC
     Route: 040
     Dates: start: 20070122, end: 20070123
  8. FLUOROURACIL [Suspect]
     Indication: DISEASE PROGRESSION
     Route: 040
     Dates: start: 20070122, end: 20070123
  9. FLUOROURACIL [Suspect]
     Route: 041
     Dates: start: 20070122, end: 20070123
  10. FLUOROURACIL [Suspect]
     Route: 041
     Dates: start: 20070122, end: 20070123
  11. OXALIPLATIN [Suspect]
     Indication: COLORECTAL CANCER METASTATIC
     Route: 041
     Dates: start: 20070122, end: 20070122
  12. OXALIPLATIN [Suspect]
     Indication: DISEASE PROGRESSION
     Route: 041
     Dates: start: 20070122, end: 20070122

REACTIONS (2)
  - DEATH [None]
  - DIARRHOEA [None]
